FAERS Safety Report 16520136 (Version 1)
Quarter: 2019Q3

REPORT INFORMATION
  Report Type: Spontaneous
  Country: US (occurrence: US)
  Receive Date: 20190702
  Receipt Date: 20190702
  Transmission Date: 20191004
  Serious: No
  Sender: FDA-Public Use
  Company Number: US-TARO-2018TAR00452

PATIENT
  Sex: Male
  Weight: 81.63 kg

DRUGS (3)
  1. RAMIPRIL. [Concomitant]
     Active Substance: RAMIPRIL
  2. CLOTRIMAZOLE/BETAMETHASONE DIPROPIONATE CREAM USP 1%/0.05% [Suspect]
     Active Substance: BETAMETHASONE DIPROPIONATE\CLOTRIMAZOLE
     Indication: TINEA CRURIS
     Dosage: NOT A LARGE AMOUNT, BUT NOT A DROP, 1X/DAY
     Route: 061
     Dates: start: 20180329, end: 20180405
  3. LOSARTAN/HCTZ [Concomitant]
     Active Substance: HYDROCHLOROTHIAZIDE\LOSARTAN

REACTIONS (7)
  - Skin texture abnormal [Not Recovered/Not Resolved]
  - Application site atrophy [Not Recovered/Not Resolved]
  - Application site erosion [Not Recovered/Not Resolved]
  - Application site discomfort [Recovering/Resolving]
  - Depressed mood [Not Recovered/Not Resolved]
  - Application site paraesthesia [Not Recovered/Not Resolved]
  - Application site erythema [Recovering/Resolving]

NARRATIVE: CASE EVENT DATE: 2018
